FAERS Safety Report 5079912-4 (Version None)
Quarter: 2006Q3

REPORT INFORMATION
  Report Type: 
  Country: None (occurrence: None)
  Receive Date: 20060815
  Receipt Date: 20060622
  Transmission Date: 20061208
  Serious: Yes (Hospitalization)
  Sender: FDA-Public Use
  Company Number: US-AMGEN-STX183937

PATIENT
  Sex: Female
  Weight: 83.1 kg

DRUGS (6)
  1. ENBREL [Suspect]
     Indication: RHEUMATOID ARTHRITIS
     Route: 058
     Dates: start: 20030101, end: 20060224
  2. PLAQUENIL [Concomitant]
     Route: 048
  3. PREDNISONE [Concomitant]
  4. DICLOFENAC [Concomitant]
     Route: 048
  5. LEVOTHYROXINE SODIUM [Concomitant]
     Route: 048
  6. OMEPRAZOLE [Concomitant]
     Route: 048

REACTIONS (9)
  - ABDOMINAL PAIN [None]
  - CONDITION AGGRAVATED [None]
  - KNEE ARTHROPLASTY [None]
  - OVARIAN CANCER [None]
  - PNEUMONIA [None]
  - RHEUMATOID ARTHRITIS [None]
  - TENDONITIS [None]
  - WHITE BLOOD CELL COUNT DECREASED [None]
  - WRIST SURGERY [None]
